FAERS Safety Report 11661414 (Version 1)
Quarter: 2015Q4

REPORT INFORMATION
  Report Type: Spontaneous
  Country: US (occurrence: US)
  Receive Date: 20151026
  Receipt Date: 20151026
  Transmission Date: 20160304
  Serious: Yes (Disabling, Other)
  Sender: FDA-Public Use
  Company Number: US-BAYER-2015-446535

PATIENT
  Age: 49 Year
  Sex: Female

DRUGS (1)
  1. CIPRO [Suspect]
     Active Substance: CIPROFLOXACIN HYDROCHLORIDE
     Indication: URINARY TRACT INFECTION
     Dosage: 250 MG, BID
     Dates: start: 201104

REACTIONS (17)
  - Stevens-Johnson syndrome [Recovering/Resolving]
  - Insomnia [Recovering/Resolving]
  - Toxicity to various agents [Recovering/Resolving]
  - Paralysis [Recovering/Resolving]
  - Sjogren^s syndrome [Recovering/Resolving]
  - Tendon injury [Recovering/Resolving]
  - Deafness [Recovering/Resolving]
  - Tendon rupture [Recovering/Resolving]
  - Liver injury [Recovering/Resolving]
  - Injury [Recovering/Resolving]
  - Renal injury [Recovering/Resolving]
  - Cardiac murmur [Recovering/Resolving]
  - Anxiety [Recovering/Resolving]
  - Guillain-Barre syndrome [Recovering/Resolving]
  - Mobility decreased [Recovering/Resolving]
  - Food allergy [Recovering/Resolving]
  - Depression [Recovering/Resolving]
